FAERS Safety Report 17089609 (Version 1)
Quarter: 2019Q4

REPORT INFORMATION
  Report Type: Spontaneous
  Country: FR (occurrence: FR)
  Receive Date: 20191128
  Receipt Date: 20191128
  Transmission Date: 20200122
  Serious: Yes (Hospitalization)
  Sender: FDA-Public Use
  Company Number: FR-009507513-1911FRA010395

PATIENT
  Age: 62 Year
  Sex: Female

DRUGS (1)
  1. KEYTRUDA [Suspect]
     Active Substance: PEMBROLIZUMAB
     Indication: MALIGNANT MELANOMA
     Dosage: 130 MILLIGRAM, CYCLICAL
     Route: 041
     Dates: start: 20180108

REACTIONS (7)
  - Adrenal insufficiency [Not Recovered/Not Resolved]
  - Asthenia [Not Recovered/Not Resolved]
  - Nausea [Not Recovered/Not Resolved]
  - Abdominal pain [Not Recovered/Not Resolved]
  - Weight decreased [Not Recovered/Not Resolved]
  - Hypophysitis [Not Recovered/Not Resolved]
  - Cortisol decreased [Not Recovered/Not Resolved]

NARRATIVE: CASE EVENT DATE: 20180219
